FAERS Safety Report 16212078 (Version 2)
Quarter: 2019Q2

REPORT INFORMATION
  Report Type: Report from Study
  Country: US (occurrence: US)
  Receive Date: 20190418
  Receipt Date: 20190425
  Transmission Date: 20190711
  Serious: Yes (Death, Hospitalization)
  Sender: FDA-Public Use
  Company Number: US-PFIZER INC-2019163943

PATIENT

DRUGS (7)
  1. OXALIPLATIN. [Suspect]
     Active Substance: OXALIPLATIN
     Indication: COLORECTAL CANCER
     Dosage: 85 MG/M2, CYCLIC (EVERY 14 DAYS)
     Route: 042
  2. BEVACIZUMAB. [Suspect]
     Active Substance: BEVACIZUMAB
     Indication: COLORECTAL CANCER
     Dosage: 5 MG/KG, CYCLIC (EVERY 14 DAYS)
     Route: 042
  3. VITAMIN D2 [Suspect]
     Active Substance: ERGOCALCIFEROL
     Dosage: 4000 IU, 1X/DAY (FOR SUBSEQUENT CYCLES)
     Route: 048
  4. VITAMIN D2 [Suspect]
     Active Substance: ERGOCALCIFEROL
     Indication: COLORECTAL CANCER
     Dosage: 8000 IU, 1X/DAY  (AS LOADING DOSE FOR CYCLE 1)
     Route: 048
  5. 5-FU [Suspect]
     Active Substance: FLUOROURACIL
     Indication: COLORECTAL CANCER
     Dosage: 2400 MG/M2, OVER 46 TO 48HRS, CYCLIC (EVERY 14 DAYS)
     Route: 042
  6. CALCIUM FOLINATE [Suspect]
     Active Substance: LEUCOVORIN CALCIUM
     Indication: COLORECTAL CANCER
     Dosage: 400 MG/M2, CYCLIC (EVERY 14 DAYS)
     Route: 042
  7. 5-FU [Suspect]
     Active Substance: FLUOROURACIL
     Dosage: 400 MG/M2, CYCLIC (EVERY 14 DAYS)
     Route: 040

REACTIONS (1)
  - Sepsis [Fatal]
